FAERS Safety Report 9439820 (Version 2)
Quarter: 2013Q3

REPORT INFORMATION
  Report Type: Spontaneous
  Country: US (occurrence: US)
  Receive Date: 20130805
  Receipt Date: 20130823
  Transmission Date: 20140515
  Serious: Yes (Other)
  Sender: FDA-Public Use
  Company Number: US-BAYER-2013-091748

PATIENT
  Age: 34 Year
  Sex: Female

DRUGS (2)
  1. MIRENA [Suspect]
     Indication: MENORRHAGIA
     Dosage: 20 MCG/24HR, CONT
     Route: 015
     Dates: start: 20130529, end: 20130702
  2. COUMADIN [Concomitant]

REACTIONS (7)
  - Drug ineffective [None]
  - Device expulsion [None]
  - Procedural pain [None]
  - Procedural pain [None]
  - Dizziness [None]
  - Nausea [None]
  - Vaginal haemorrhage [None]
